FAERS Safety Report 4939448-5 (Version None)
Quarter: 2006Q1

REPORT INFORMATION
  Report Type: 
  Country: None (occurrence: None)
  Receive Date: 20060306
  Receipt Date: 20060227
  Transmission Date: 20060701
  Serious: Yes (Disabling)
  Sender: FDA-Public Use
  Company Number: 2006-139152-NL

PATIENT
  Age: 41 Year
  Sex: Female

DRUGS (5)
  1. ROCURONIUM BROMIDE [Suspect]
     Indication: ANAESTHESIA
     Dosage: 35 MG ONCE INTRAVENOUS (NOS)
     Route: 042
     Dates: start: 20060131, end: 20060131
  2. ROCURONIUM BROMIDE [Suspect]
     Indication: HYPOTONIA
     Dosage: 35 MG ONCE INTRAVENOUS (NOS)
     Route: 042
     Dates: start: 20060131, end: 20060131
  3. MIDAZOLAM HCL [Concomitant]
  4. PROPOFOL [Concomitant]
  5. FENTANYL [Concomitant]

REACTIONS (4)
  - ANAPHYLACTIC REACTION [None]
  - ANOXIC ENCEPHALOPATHY [None]
  - BRONCHOSPASM [None]
  - CIRCULATORY COLLAPSE [None]
